FAERS Safety Report 21977175 (Version 1)
Quarter: 2023Q1

REPORT INFORMATION
  Report Type: Report from Study
  Country: US (occurrence: None)
  Receive Date: 20230210
  Receipt Date: 20230210
  Transmission Date: 20230418
  Serious: Yes (Other)
  Sender: FDA-Public Use
  Company Number: US-ROCHE-3278146

PATIENT

DRUGS (2)
  1. ATEZOLIZUMAB [Suspect]
     Active Substance: ATEZOLIZUMAB
     Indication: Bile duct cancer
     Route: 065
  2. VARLILUMAB [Suspect]
     Active Substance: VARLILUMAB
     Indication: Bile duct cancer
     Route: 065

REACTIONS (4)
  - Acute kidney injury [Unknown]
  - Ileus [Unknown]
  - Sepsis [Unknown]
  - Tumour lysis syndrome [Unknown]
